FAERS Safety Report 7203343-1 (Version None)
Quarter: 2010Q4

REPORT INFORMATION
  Report Type: 
  Country: None (occurrence: None)
  Receive Date: 20101230
  Receipt Date: 20101223
  Transmission Date: 20110411
  Serious: Yes (Other)
  Sender: FDA-Public Use
  Company Number: US-SHIRE-ALL1-2010-06130

PATIENT
  Sex: Male
  Weight: 47.347 kg

DRUGS (2)
  1. VYVANSE [Suspect]
     Indication: ATTENTION DEFICIT/HYPERACTIVITY DISORDER
     Dosage: 30 MG, 1X/DAY:QD
     Route: 048
     Dates: start: 20071009, end: 20100915
  2. PERIACTIN [Concomitant]
     Indication: APPETITE DISORDER
     Dosage: 1 1/2 OF A 4 MG TABLET AT HS.
     Route: 048
     Dates: start: 20071101, end: 20100915

REACTIONS (6)
  - ABNORMAL LOSS OF WEIGHT [None]
  - ALANINE AMINOTRANSFERASE DECREASED [None]
  - BLOOD BILIRUBIN INCREASED [None]
  - BLOOD PRESSURE INCREASED [None]
  - CONDITION AGGRAVATED [None]
  - DECREASED APPETITE [None]
